FAERS Safety Report 25900547 (Version 1)
Quarter: 2025Q4

REPORT INFORMATION
  Report Type: Spontaneous
  Country: EU (occurrence: EU)
  Receive Date: 20251009
  Receipt Date: 20251009
  Transmission Date: 20260118
  Serious: Yes (Hospitalization)
  Sender: MYLAN
  Company Number: EU-MYLANLABS-2025M1085965

PATIENT
  Age: 75 Year
  Sex: Female

DRUGS (3)
  1. ROPIVACAINE [Interacting]
     Active Substance: ROPIVACAINE
     Indication: Local anaesthesia
     Dosage: 20 MILLILITER
  2. ROPIVACAINE [Interacting]
     Active Substance: ROPIVACAINE
     Indication: Nerve block
  3. CLONIDINE [Interacting]
     Active Substance: CLONIDINE
     Indication: Nerve block
     Dosage: 50 MICROGRAM

REACTIONS (2)
  - Hypotension [Recovered/Resolved]
  - Drug interaction [Recovered/Resolved]
